FAERS Safety Report 7803493-2 (Version None)
Quarter: 2011Q4

REPORT INFORMATION
  Report Type: 
  Country: None (occurrence: None)
  Receive Date: 20111007
  Receipt Date: 20110928
  Transmission Date: 20120403
  Serious: Yes (Hospitalization, Other)
  Sender: FDA-Public Use
  Company Number: US-ASTRAZENECA-2010SE00808

PATIENT
  Age: 50 Year
  Sex: Female

DRUGS (1)
  1. ZOMIG-ZMT [Suspect]
     Route: 048

REACTIONS (8)
  - VOMITING [None]
  - SPONDYLITIS [None]
  - NAUSEA [None]
  - PAIN [None]
  - MIGRAINE [None]
  - DEHYDRATION [None]
  - DRUG PRESCRIBING ERROR [None]
  - EXOSTOSIS [None]
